FAERS Safety Report 23093074 (Version 1)
Quarter: 2023Q4

REPORT INFORMATION
  Report Type: Spontaneous
  Country: None (occurrence: GB)
  Receive Date: 20231021
  Receipt Date: 20231021
  Transmission Date: 20240109
  Serious: Yes (Other)
  Sender: FDA-Public Use
  Company Number: GB-Ascend Therapeutics US, LLC-2147351

PATIENT
  Age: 60 Year
  Sex: Female

DRUGS (2)
  1. ESTROGEL [Suspect]
     Active Substance: ESTRADIOL
     Indication: Product used for unknown indication
     Route: 065
  2. ESTRADIOL [Suspect]
     Active Substance: ESTRADIOL
     Route: 065

REACTIONS (2)
  - Menopausal symptoms [Recovered/Resolved]
  - Dizziness [Recovering/Resolving]
